FAERS Safety Report 18127276 (Version 1)
Quarter: 2020Q3

REPORT INFORMATION
  Report Type: Spontaneous
  Country: US (occurrence: US)
  Receive Date: 20200810
  Receipt Date: 20200810
  Transmission Date: 20201103
  Serious: No
  Sender: FDA-Public Use
  Company Number: US-SA-2020SA206754

PATIENT

DRUGS (1)
  1. ENOXAPARIN SODIUM ? WINTHROP [Suspect]
     Active Substance: ENOXAPARIN SODIUM
     Indication: THROMBOSIS
     Dosage: UNK
     Route: 065
     Dates: start: 20200723

REACTIONS (2)
  - Expired product administered [Unknown]
  - Product dispensing error [Unknown]
